FAERS Safety Report 13646282 (Version 1)
Quarter: 2017Q2

REPORT INFORMATION
  Report Type: Spontaneous
  Country: US (occurrence: US)
  Receive Date: 20170612
  Receipt Date: 20170612
  Transmission Date: 20170830
  Serious: Yes (Other)
  Sender: FDA-Public Use
  Company Number: None

PATIENT
  Age: 63 Year
  Sex: Male
  Weight: 90.35 kg

DRUGS (1)
  1. GADOLINIUM CONTRAST [Suspect]
     Active Substance: GADOLINIUM

REACTIONS (6)
  - Nausea [None]
  - Bone pain [None]
  - Urticaria [None]
  - Skin lesion [None]
  - Arthralgia [None]
  - Contrast media reaction [None]

NARRATIVE: CASE EVENT DATE: 20160620
